FAERS Safety Report 11453895 (Version 4)
Quarter: 2016Q1

REPORT INFORMATION
  Report Type: Report from Study
  Country: US (occurrence: US)
  Receive Date: 20150903
  Receipt Date: 20160105
  Transmission Date: 20160525
  Serious: Yes (Other)
  Sender: FDA-Public Use
  Company Number: PHEH2015US016988

PATIENT
  Age: 36 Year
  Sex: Female
  Weight: 70.3 kg

DRUGS (16)
  1. QUETIAPINE [Concomitant]
     Active Substance: QUETIAPINE
     Indication: PRODUCT USED FOR UNKNOWN INDICATION
     Dosage: 1 DF, UNK
     Route: 048
     Dates: start: 20140606, end: 20150714
  2. TECFIDERA [Suspect]
     Active Substance: DIMETHYL FUMARATE
     Indication: MULTIPLE SCLEROSIS
     Route: 065
  3. QUETIAPINE FUMARATE. [Concomitant]
     Active Substance: QUETIAPINE FUMARATE
     Indication: PRODUCT USED FOR UNKNOWN INDICATION
     Dosage: 1 DF, BID
     Route: 048
     Dates: start: 20150508, end: 20150902
  4. MORPHINE [Suspect]
     Active Substance: MORPHINE
     Indication: PRODUCT USED FOR UNKNOWN INDICATION
     Dosage: UNK
     Route: 065
     Dates: start: 20110803
  5. GILENYA [Suspect]
     Active Substance: FINGOLIMOD HYDROCHLORIDE
     Indication: MULTIPLE SCLEROSIS
     Dosage: 0.5 MG, UNK
     Route: 048
     Dates: end: 20150714
  6. METHYLPREDNISOLONE SODIUM SUCCINATE. [Concomitant]
     Active Substance: METHYLPREDNISOLONE SODIUM SUCCINATE
     Indication: PRODUCT USED FOR UNKNOWN INDICATION
     Dosage: UNK
     Route: 065
     Dates: start: 20140109, end: 20150709
  7. CALCIUM [Concomitant]
     Active Substance: CALCIUM
     Indication: PRODUCT USED FOR UNKNOWN INDICATION
     Dosage: 600 MG, BID
     Route: 048
  8. IRON SUCROSE [Concomitant]
     Active Substance: IRON SUCROSE
     Indication: PRODUCT USED FOR UNKNOWN INDICATION
     Dosage: EVERY 7 DAYS
     Route: 042
     Dates: end: 20150902
  9. LYSTEDA [Concomitant]
     Active Substance: TRANEXAMIC ACID
     Indication: PRODUCT USED FOR UNKNOWN INDICATION
     Dosage: 1300 MG, TID
     Route: 048
     Dates: end: 20150508
  10. LORAZEPAM. [Concomitant]
     Active Substance: LORAZEPAM
     Indication: PRODUCT USED FOR UNKNOWN INDICATION
     Dosage: 1 DF, UNK
     Route: 048
     Dates: start: 20121101, end: 20150714
  11. NORTRIPTYLINE [Concomitant]
     Active Substance: NORTRIPTYLINE
     Indication: PRODUCT USED FOR UNKNOWN INDICATION
     Dosage: 3 DF (NIGHTLY)
     Route: 048
     Dates: start: 20120227, end: 20150824
  12. DELTASONE [Concomitant]
     Active Substance: PREDNISONE
     Indication: PRODUCT USED FOR UNKNOWN INDICATION
     Dosage: 4 DF FOR 4 DAYS, 3 DF FOR NEXT 4 DAYS THEN 2 DFDAILY FOR NEXT 4 DAYS THEN 1 DF FOR NEXT 4DAYS
     Route: 065
     Dates: start: 20150824, end: 20150831
  13. VITAMIN D3 [Concomitant]
     Active Substance: CHOLECALCIFEROL
     Indication: PRODUCT USED FOR UNKNOWN INDICATION
     Dosage: 3 DF, BID
     Route: 048
  14. PROHANCE//GADOTERIDOL [Concomitant]
     Indication: PRODUCT USED FOR UNKNOWN INDICATION
     Route: 065
  15. BENADRYL ALLERGY [Concomitant]
     Active Substance: DIPHENHYDRAMINE HYDROCHLORIDE
     Indication: PRODUCT USED FOR UNKNOWN INDICATION
     Dosage: 25 MG (EVERY 6 HOURS), PRN
     Route: 048
  16. ALEVE [Concomitant]
     Active Substance: NAPROXEN SODIUM
     Indication: PRODUCT USED FOR UNKNOWN INDICATION
     Dosage: 1 DF (FOR EVERY 12 HOURS AS NEEDED), PRN
     Route: 048
     Dates: start: 20140714

REACTIONS (32)
  - Multiple sclerosis relapse [Unknown]
  - Gait disturbance [Unknown]
  - Hyperreflexia [Unknown]
  - Decreased vibratory sense [Unknown]
  - Vitamin D deficiency [Unknown]
  - Urticaria [Unknown]
  - Muscle tightness [Recovered/Resolved]
  - Confusional state [Unknown]
  - Drug hypersensitivity [Unknown]
  - Weight decreased [Recovering/Resolving]
  - Full blood count abnormal [Unknown]
  - Rash [Unknown]
  - Viral upper respiratory tract infection [Recovered/Resolved]
  - Central nervous system lesion [Unknown]
  - Memory impairment [Recovering/Resolving]
  - Emotional disorder [Recovering/Resolving]
  - Affective disorder [Unknown]
  - Immune reconstitution inflammatory syndrome [Unknown]
  - Headache [Recovering/Resolving]
  - Cognitive disorder [Recovering/Resolving]
  - Coordination abnormal [Recovered/Resolved]
  - Fall [Unknown]
  - Blood pressure decreased [Unknown]
  - Abnormal behaviour [Unknown]
  - Blood pressure increased [Unknown]
  - Sinusitis [Recovered/Resolved]
  - Anxiety [Unknown]
  - Fatigue [Recovering/Resolving]
  - Decreased appetite [Unknown]
  - Heart rate decreased [Unknown]
  - Cough [Unknown]
  - Sleep disorder [Recovered/Resolved]

NARRATIVE: CASE EVENT DATE: 20110803
